FAERS Safety Report 9192155 (Version 1)
Quarter: 2013Q1

REPORT INFORMATION
  Report Type: Spontaneous
  Country: US (occurrence: None)
  Receive Date: 20120703
  Receipt Date: 20120703
  Transmission Date: 20140127
  Serious: No
  Sender: FDA-Public Use
  Company Number: PHEH2012US007252

PATIENT
  Sex: Female

DRUGS (5)
  1. GILENYA (FTY)CAPSULE [Suspect]
     Dates: start: 2011, end: 2011
  2. LYRICA (PREGABALIN) [Concomitant]
  3. ADDERALL (AMFETAMINE ASPARTATE, AMFETAMINE SULFATE, DEXAMFETAMINE SACCHARATE, DEXAMFETAMINE SULFATE) [Concomitant]
  4. AMBIEN (ZOLPIDEM TARTRATE) [Concomitant]
  5. WELLBUTRIN (BUPROPION HYDROCHLORIDE ) [Concomitant]

REACTIONS (6)
  - Atrophy [None]
  - Hypotension [None]
  - Dyspnoea [None]
  - White blood cell count decreased [None]
  - Multiple sclerosis relapse [None]
  - Drug ineffective [None]
